FAERS Safety Report 11598862 (Version 1)
Quarter: 2015Q4

REPORT INFORMATION
  Report Type: Spontaneous
  Country: US (occurrence: US)
  Receive Date: 20151006
  Receipt Date: 20151006
  Transmission Date: 20160304
  Serious: No
  Sender: FDA-Public Use
  Company Number: US-BAYER-2015-437446

PATIENT
  Age: 86 Year
  Sex: Male
  Weight: 77.98 kg

DRUGS (1)
  1. OXYTROL FOR WOMEN [Suspect]
     Active Substance: OXYBUTYNIN
     Indication: INCONTINENCE
     Route: 061

REACTIONS (1)
  - Intercepted drug dispensing error [None]
